FAERS Safety Report 25894936 (Version 1)
Quarter: 2025Q4

REPORT INFORMATION
  Report Type: Spontaneous
  Country: EU (occurrence: EU)
  Receive Date: 20251008
  Receipt Date: 20251008
  Transmission Date: 20260117
  Serious: Yes (Life-Threatening, Hospitalization)
  Sender: ACCORD
  Company Number: None

PATIENT
  Age: 1 Day
  Sex: Female
  Weight: 1.03 kg

DRUGS (4)
  1. PACLITAXEL [Suspect]
     Active Substance: PACLITAXEL
     Dosage: NO INFORMATION ON DOSES
     Dates: start: 202501, end: 202508
  2. EPIRUBICIN HYDROCHLORIDE [Suspect]
     Active Substance: EPIRUBICIN HYDROCHLORIDE
     Dosage: NO INFORMATION ON DOSES
     Dates: start: 202501
  3. HERCEPTIN [Suspect]
     Active Substance: TRASTUZUMAB
     Dosage: NO INFORMATION ON DOSES
     Dates: start: 202501, end: 20250507
  4. CYCLOPHOSPHAMIDE [Suspect]
     Active Substance: CYCLOPHOSPHAMIDE
     Dosage: NO INFORMATION ON DOSES
     Dates: start: 202501

REACTIONS (3)
  - Cardiac dysfunction [Recovered/Resolved]
  - Growth retardation [Recovered/Resolved]
  - Maternal exposure timing unspecified [Recovered/Resolved]

NARRATIVE: CASE EVENT DATE: 20250809
